FAERS Safety Report 4722963-7 (Version None)
Quarter: 2005Q3

REPORT INFORMATION
  Report Type: 
  Country: None (occurrence: None)
  Receive Date: 20050719
  Receipt Date: 20041007
  Transmission Date: 20060218
  Serious: Yes (Hospitalization)
  Sender: FDA-Public Use
  Company Number: 2004237754US

PATIENT
  Age: 76 Year
  Sex: Female
  Weight: 70.3 kg

DRUGS (4)
  1. CELEBREX [Suspect]
     Indication: OSTEOARTHRITIS
     Dosage: 100 MG
     Dates: start: 20010101
  2. CENTRIUM (VITAMINS NOS) [Concomitant]
  3. GLUCOSAMINE W/CHONDROITIN SULFATES [Concomitant]
  4. (MANGANESE, GLUCOSAMINE SULFATE) [Concomitant]

REACTIONS (1)
  - ULCER HAEMORRHAGE [None]
